FAERS Safety Report 4689550-0 (Version None)
Quarter: 2005Q2

REPORT INFORMATION
  Report Type: 
  Country: None (occurrence: None)
  Receive Date: 20050613
  Receipt Date: 20050613
  Transmission Date: 20051028
  Serious: Yes (Hospitalization)
  Sender: FDA-Public Use
  Company Number: None

PATIENT
  Age: 73 Year
  Sex: Male
  Weight: 84 kg

DRUGS (2)
  1. WARFARIN [Suspect]
     Indication: PULMONARY EMBOLISM
     Dosage: 2 MG PO , 3 MG PO
     Route: 048
     Dates: start: 20050311, end: 20050315
  2. WARFARIN [Suspect]
     Indication: PULMONARY EMBOLISM
     Dosage: 2 MG PO , 3 MG PO
     Route: 048
     Dates: start: 20050315, end: 20050316

REACTIONS (3)
  - ECCHYMOSIS [None]
  - PSOAS SIGN [None]
  - RETROPERITONEAL HAEMATOMA [None]
